FAERS Safety Report 11821812 (Version 1)
Quarter: 2015Q4

REPORT INFORMATION
  Report Type: Spontaneous
  Country: US (occurrence: US)
  Receive Date: 20151210
  Receipt Date: 20151210
  Transmission Date: 20160305
  Serious: No
  Sender: FDA-Public Use
  Company Number: US-JNJFOC-20150903308

PATIENT
  Age: 54 Year
  Sex: Male

DRUGS (12)
  1. IMBRUVICA [Suspect]
     Active Substance: IBRUTINIB
     Indication: HAIRY CELL LEUKAEMIA
     Route: 048
     Dates: start: 20150725
  2. GRANISETRON [Concomitant]
     Active Substance: GRANISETRON
  3. METAMUCIL [Concomitant]
     Active Substance: PLANTAGO SEED
  4. ACYCLOVIR. [Concomitant]
     Active Substance: ACYCLOVIR
  5. LACTOBACILLUS [Concomitant]
     Active Substance: LACTOBACILLUS ACIDOPHILUS
  6. LORAZEPAM. [Concomitant]
     Active Substance: LORAZEPAM
  7. FLUCONAZOLE. [Concomitant]
     Active Substance: FLUCONAZOLE
  8. MULTIVITAMINS [Concomitant]
     Active Substance: VITAMINS
  9. PANTOPRAZOLE [Concomitant]
     Active Substance: PANTOPRAZOLE SODIUM
  10. PROMETHAZINE [Concomitant]
     Active Substance: PROMETHAZINE\PROMETHAZINE HYDROCHLORIDE
  11. ONDANSETRON [Concomitant]
     Active Substance: ONDANSETRON
  12. RANITIDINE [Concomitant]
     Active Substance: RANITIDINE\RANITIDINE HYDROCHLORIDE

REACTIONS (2)
  - Off label use [Unknown]
  - Haematochezia [Unknown]

NARRATIVE: CASE EVENT DATE: 20150725
